FAERS Safety Report 10396600 (Version 2)
Quarter: 2014Q3

REPORT INFORMATION
  Report Type: Spontaneous
  Country: US (occurrence: US)
  Receive Date: 20140820
  Receipt Date: 20140820
  Transmission Date: 20150326
  Serious: Yes (Hospitalization)
  Sender: FDA-Public Use
  Company Number: US-GLAXOSMITHKLINE-A0696648A

PATIENT
  Sex: Male
  Weight: 81.4 kg

DRUGS (2)
  1. AVANDAMET [Suspect]
     Active Substance: METFORMIN HYDROCHLORIDE\ROSIGLITAZONE MALEATE
     Indication: GLUCOSE TOLERANCE IMPAIRED
     Route: 048
     Dates: start: 20070103, end: 20091014
  2. AVANDIA [Suspect]
     Active Substance: ROSIGLITAZONE MALEATE
     Indication: GLUCOSE TOLERANCE IMPAIRED
     Route: 048
     Dates: start: 200702

REACTIONS (3)
  - Acute coronary syndrome [Unknown]
  - Myocardial infarction [Unknown]
  - Coronary artery disease [Unknown]
